FAERS Safety Report 14034183 (Version 1)
Quarter: 2017Q4

REPORT INFORMATION
  Report Type: Spontaneous
  Country: US (occurrence: US)
  Receive Date: 20171003
  Receipt Date: 20171003
  Transmission Date: 20180321
  Serious: No
  Sender: FDA-Public Use
  Company Number: US-TEVA-726940ACC

PATIENT
  Sex: Female

DRUGS (3)
  1. CLONAODT [Suspect]
     Active Substance: CLONAZEPAM
     Indication: INSOMNIA
  2. CLONAODT [Suspect]
     Active Substance: CLONAZEPAM
  3. TRAZODONE [Concomitant]
     Active Substance: TRAZODONE HYDROCHLORIDE

REACTIONS (3)
  - Dizziness [Not Recovered/Not Resolved]
  - Balance disorder [Not Recovered/Not Resolved]
  - Somnolence [Not Recovered/Not Resolved]
